FAERS Safety Report 10193046 (Version 2)
Quarter: 2014Q2

REPORT INFORMATION
  Report Type: Spontaneous
  Country: US (occurrence: US)
  Receive Date: 20140524
  Receipt Date: 20140604
  Transmission Date: 20141212
  Serious: No
  Sender: FDA-Public Use
  Company Number: US-009507513-1404USA014435

PATIENT
  Age: 70 Year
  Sex: Female
  Weight: 47.17 kg

DRUGS (7)
  1. OXYTROL FOR WOMEN [Suspect]
     Indication: HYPERTONIC BLADDER
     Dosage: 1 PATCH EVERY 4 DAYS
     Route: 062
     Dates: start: 20140410, end: 20140423
  2. CITALOPRAM [Concomitant]
  3. TRAZODONE HYDROCHLORIDE [Concomitant]
  4. ARMOUR THYROID TABLETS [Concomitant]
  5. RANITIDINE [Concomitant]
  6. MINERALS (UNSPECIFIED) (+) VITAMINS (UNSPECIFIED) [Concomitant]
     Dosage: 1 UNK, UNK
  7. ASPIRIN [Concomitant]

REACTIONS (6)
  - Application site erythema [Recovered/Resolved]
  - Application site rash [Recovered/Resolved]
  - Skin injury [Recovered/Resolved]
  - Application site pruritus [Recovered/Resolved]
  - Application site pain [Recovered/Resolved]
  - Drug ineffective [Unknown]
